FAERS Safety Report 24766109 (Version 1)
Quarter: 2024Q4

REPORT INFORMATION
  Report Type: Spontaneous
  Country: JP (occurrence: JP)
  Receive Date: 20241223
  Receipt Date: 20241223
  Transmission Date: 20250115
  Serious: Yes (Other)
  Sender: Phathom Pharmaceuticals
  Company Number: JP-PHATHOM PHARMACEUTICALS INC.-2024PHT01521

PATIENT
  Age: 83 Year
  Sex: Female

DRUGS (10)
  1. VONOPRAZAN FUMARATE [Suspect]
     Active Substance: VONOPRAZAN FUMARATE
     Indication: Product used for unknown indication
     Dosage: UNK
     Route: 048
  2. SAMSCA [Concomitant]
     Active Substance: TOLVAPTAN
  3. WARFARIN [Concomitant]
     Active Substance: WARFARIN
  4. CARVEDILOL [Concomitant]
     Active Substance: CARVEDILOL
  5. PIMOBENDAN [Concomitant]
     Active Substance: PIMOBENDAN
  6. FUROSEMIDE [Concomitant]
     Active Substance: FUROSEMIDE
  7. AMIODARONE HYDROCHLORIDE [Concomitant]
     Active Substance: AMIODARONE HYDROCHLORIDE
  8. LEVOTHYROXINE SODIUM [Concomitant]
     Active Substance: LEVOTHYROXINE SODIUM
  9. DAPRODUSTAT [Concomitant]
     Active Substance: DAPRODUSTAT
  10. SODIUM FERROUS CITRATE [Concomitant]
     Active Substance: SODIUM FERROUS CITRATE

REACTIONS (4)
  - Haematochezia [Unknown]
  - Gastrointestinal vascular malformation haemorrhagic [Unknown]
  - Gastrointestinal angiodysplasia [Unknown]
  - Off label use [Unknown]
